FAERS Safety Report 7796582-2 (Version None)
Quarter: 2011Q4

REPORT INFORMATION
  Report Type: 
  Country: None (occurrence: None)
  Receive Date: 20111005
  Receipt Date: 20110929
  Transmission Date: 20120403
  Serious: Yes (Hospitalization, Other)
  Sender: FDA-Public Use
  Company Number: US-PFIZER INC-2011232587

PATIENT
  Sex: Male

DRUGS (3)
  1. COUMADIN [Interacting]
     Dosage: UNK
  2. DILANTIN-125 [Suspect]
     Dosage: UNK
  3. LOVENOX [Interacting]
     Dosage: UNK

REACTIONS (3)
  - DRUG INTERACTION [None]
  - DRUG LEVEL FLUCTUATING [None]
  - STATUS EPILEPTICUS [None]
